FAERS Safety Report 5130195-6 (Version None)
Quarter: 2006Q4

REPORT INFORMATION
  Report Type: 
  Country: None (occurrence: None)
  Receive Date: 20061013
  Receipt Date: 20061002
  Transmission Date: 20070319
  Serious: Yes (Hospitalization)
  Sender: FDA-Public Use
  Company Number: US018378

PATIENT
  Age: 34 Year
  Sex: Female
  Weight: 62.5964 kg

DRUGS (3)
  1. ACTIQ [Suspect]
     Indication: BACK PAIN
     Dosage: 1200 UG Q3HR BUCCAL
     Route: 002
     Dates: start: 20040101, end: 20060101
  2. ACTIQ [Suspect]
     Indication: BACK PAIN
     Dosage: 800 UG TID BUCCAL
     Route: 002
     Dates: start: 20060101
  3. METHADONE [Concomitant]

REACTIONS (6)
  - CHILLS [None]
  - DRUG WITHDRAWAL SYNDROME [None]
  - INADEQUATE ANALGESIA [None]
  - OFF LABEL USE [None]
  - PAIN [None]
  - WEIGHT DECREASED [None]
